FAERS Safety Report 11414561 (Version 3)
Quarter: 2017Q1

REPORT INFORMATION
  Report Type: Report from Study
  Country: JP (occurrence: JP)
  Receive Date: 20150825
  Receipt Date: 20170302
  Transmission Date: 20170428
  Serious: Yes (Hospitalization, Other)
  Sender: FDA-Public Use
  Company Number: JP-BRISTOL-MYERS SQUIBB COMPANY-BMS-2015-055158

PATIENT
  Age: 78 Year
  Sex: Male
  Weight: 54 kg

DRUGS (17)
  1. TERNELIN [Concomitant]
     Active Substance: TIZANIDINE
     Indication: CEREBRAL INFARCTION
     Route: 065
  2. MUCOSOLVAN [Concomitant]
     Active Substance: AMBROXOL HYDROCHLORIDE
     Indication: PROPHYLAXIS
     Dosage: 45 MG, QD
     Route: 048
     Dates: end: 20150220
  3. CRAVIT [Concomitant]
     Active Substance: LEVOFLOXACIN
     Indication: PYELONEPHRITIS
     Dosage: 750 MG, QD
     Route: 048
     Dates: start: 20140314, end: 20140317
  4. ZYLORIC [Concomitant]
     Active Substance: ALLOPURINOL
     Indication: HYPERURICAEMIA
     Dosage: 100 MG, QD
     Route: 048
     Dates: end: 20150220
  5. APIXABAN [Suspect]
     Active Substance: APIXABAN
     Indication: CEREBROVASCULAR ACCIDENT PROPHYLAXIS
     Dosage: 5 MG, BID
     Route: 048
     Dates: start: 20140308
  6. MARZULENE                          /00317302/ [Concomitant]
     Indication: PROPHYLAXIS
     Dosage: 1.5 G, QD
     Route: 048
     Dates: end: 2014
  7. PARIET [Concomitant]
     Active Substance: RABEPRAZOLE SODIUM
     Indication: PROPHYLAXIS
     Dosage: 10 MG, QD
     Route: 048
     Dates: start: 2014
  8. ASPARA-CA [Concomitant]
     Active Substance: CALCIUM ASPARTATE
     Indication: OSTEOPOROSIS
     Dosage: 200 MG, QD
     Route: 048
     Dates: end: 20140330
  9. TERNELIN [Concomitant]
     Active Substance: TIZANIDINE
     Indication: PARALYSIS
     Dosage: 3 MG, QD
     Route: 048
     Dates: end: 20150220
  10. CALBLOCK [Concomitant]
     Active Substance: AZELNIDIPINE
     Indication: HYPERTENSION
     Dosage: 16 MG, QD
     Route: 048
     Dates: end: 20150109
  11. OLMETEC [Concomitant]
     Active Substance: OLMESARTAN MEDOXOMIL
     Indication: HYPERTENSION
     Dosage: 40 MG, QD
     Route: 048
     Dates: end: 2014
  12. FERROMIA [Concomitant]
     Active Substance: FERROUS CITRATE
     Indication: IRON DEFICIENCY ANAEMIA
     Dosage: 100 MG, QD
     Route: 048
     Dates: start: 2014, end: 20150220
  13. AZUNOL                             /00317302/ [Concomitant]
     Indication: ECZEMA ASTEATOTIC
     Dosage: UNK, QD
     Route: 062
     Dates: start: 20150305
  14. ALFAROL [Concomitant]
     Active Substance: ALFACALCIDOL
     Indication: OSTEOPOROSIS
     Dosage: 1 ?G, QD
     Route: 048
     Dates: end: 20140330
  15. NERISONA [Concomitant]
     Active Substance: DIFLUCORTOLONE VALERATE
     Indication: ECZEMA ASTEATOTIC
     Dosage: UNK, QD
     Route: 062
     Dates: start: 20150305
  16. PASTARON [Concomitant]
     Active Substance: UREA
     Indication: ECZEMA ASTEATOTIC
     Dosage: UNK, QD
     Route: 062
     Dates: start: 20150305
  17. FEXOFENADINE HCL [Concomitant]
     Active Substance: FEXOFENADINE HYDROCHLORIDE
     Indication: ECZEMA ASTEATOTIC
     Dosage: 120 MG, QD
     Route: 048
     Dates: start: 20150305

REACTIONS (8)
  - Gastrointestinal endoscopic therapy [Unknown]
  - Bile duct stone [Recovering/Resolving]
  - Cholecystectomy [Unknown]
  - Gastrostomy [Unknown]
  - Colon cancer [Recovered/Resolved with Sequelae]
  - Ureteral stent insertion [Unknown]
  - Pneumonia aspiration [Recovering/Resolving]
  - Colostomy [Unknown]

NARRATIVE: CASE EVENT DATE: 20140430
